FAERS Safety Report 5217879-6 (Version None)
Quarter: 2007Q1

REPORT INFORMATION
  Report Type: 
  Country: None (occurrence: None)
  Receive Date: 20070124
  Receipt Date: 20070110
  Transmission Date: 20070707
  Serious: Yes (Hospitalization)
  Sender: FDA-Public Use
  Company Number: FR-SHR-FR-2007-001487

PATIENT
  Age: 88 Year
  Sex: Male
  Weight: 72 kg

DRUGS (7)
  1. SOTALOL HYDROCHLORIDE [Suspect]
     Dosage: 80 MG, 1X/DAY
     Route: 048
  2. SOTALOL HYDROCHLORIDE [Suspect]
     Dosage: 40 MG, 1X/DAY
     Route: 048
  3. ZESTRIL [Suspect]
     Dosage: 5 MG, 1X/DAY
     Route: 048
  4. MONICOR L.P. [Suspect]
     Dosage: 20 MG, 1X/DAY
     Route: 048
  5. MOLSIDOMINE [Suspect]
     Dosage: 1 OTHER, 1X/DAY
     Route: 048
  6. CIPRALAN [Concomitant]
     Route: 048
  7. PREVISCAN [Concomitant]
     Route: 048

REACTIONS (3)
  - DRUG INTERACTION [None]
  - MALAISE [None]
  - ORTHOSTATIC HYPOTENSION [None]
